FAERS Safety Report 5688913-4 (Version None)
Quarter: 2008Q1

REPORT INFORMATION
  Report Type: 
  Country: None (occurrence: None)
  Receive Date: 20080331
  Receipt Date: 20080320
  Transmission Date: 20080703
  Serious: Yes (Hospitalization)
  Sender: FDA-Public Use
  Company Number: US-JNJFOC-20080305571

PATIENT
  Sex: Female
  Weight: 55.34 kg

DRUGS (2)
  1. FENTANYL TRANSDERMAL SYSTEM [Suspect]
     Indication: PAIN
     Route: 062
  2. OXYCODONE HCL [Concomitant]
     Indication: PAIN
     Dosage: EVERY 6 HOURS AS NEEDED
     Route: 048

REACTIONS (3)
  - CLOSTRIDIUM DIFFICILE COLITIS [None]
  - PHARYNGOLARYNGEAL PAIN [None]
  - VOMITING [None]
